FAERS Safety Report 16272208 (Version 1)
Quarter: 2019Q2

REPORT INFORMATION
  Report Type: Spontaneous
  Country: PT (occurrence: PT)
  Receive Date: 20190503
  Receipt Date: 20190503
  Transmission Date: 20190711
  Serious: Yes (Death, Other)
  Sender: FDA-Public Use
  Company Number: PT-FRESENIUS KABI-FK201905129

PATIENT
  Age: 20 Year
  Sex: Female

DRUGS (5)
  1. VANCOMYCIN (MANUFACTURER UNKNOWN) [Suspect]
     Active Substance: VANCOMYCIN
     Indication: PRODUCT USED FOR UNKNOWN INDICATION
     Dosage: UNKNOWN
     Route: 065
  2. ITRACONAZOLE. [Suspect]
     Active Substance: ITRACONAZOLE
     Indication: BRONCHOPULMONARY ASPERGILLOSIS ALLERGIC
     Route: 065
  3. CEFTAZIDIME (MANUFACTURER UNKNOWN) [Suspect]
     Active Substance: CEFTAZIDIME
     Indication: PSEUDOMONAS INFECTION
     Dosage: UNKNOWN
     Route: 065
  4. TOBRAMYCIN (MANUFACTURER UNKNOWN) [Suspect]
     Active Substance: TOBRAMYCIN
     Indication: PSEUDOMONAS INFECTION
     Dosage: UNKNOWN
     Route: 042
  5. PREDNISOLONE. [Suspect]
     Active Substance: PREDNISOLONE
     Indication: BRONCHOPULMONARY ASPERGILLOSIS ALLERGIC
     Route: 048

REACTIONS (4)
  - Bronchopulmonary aspergillosis [Fatal]
  - Pneumothorax [Fatal]
  - General physical health deterioration [Fatal]
  - Treatment failure [Unknown]
